FAERS Safety Report 13839244 (Version 1)
Quarter: 2017Q3

REPORT INFORMATION
  Report Type: Spontaneous
  Country: US (occurrence: US)
  Receive Date: 20170806
  Receipt Date: 20170806
  Transmission Date: 20171127
  Serious: Yes (Disabling)
  Sender: FDA-Public Use
  Company Number: None

PATIENT
  Sex: Female
  Weight: 77.85 kg

DRUGS (7)
  1. HYDROCHLORATHIAZIDE [Concomitant]
     Active Substance: HYDROCHLOROTHIAZIDE
  2. ASPIRIN. [Concomitant]
     Active Substance: ASPIRIN
  3. POTASSIUM [Concomitant]
     Active Substance: POTASSIUM
  4. METOPROLOL. [Concomitant]
     Active Substance: METOPROLOL
  5. CIPRO [Suspect]
     Active Substance: CIPROFLOXACIN HYDROCHLORIDE
     Indication: DIVERTICULITIS
     Dosage: ?          QUANTITY:20 TABLET(S);?
     Route: 048
     Dates: start: 20170703, end: 20170712
  6. MAGNESIUM [Concomitant]
     Active Substance: MAGNESIUM
  7. RAMAPRIL [Concomitant]

REACTIONS (5)
  - Myalgia [None]
  - Musculoskeletal pain [None]
  - Pain in extremity [None]
  - Neck pain [None]
  - Arthralgia [None]

NARRATIVE: CASE EVENT DATE: 20170711
